FAERS Safety Report 25130104 (Version 1)
Quarter: 2025Q1

REPORT INFORMATION
  Report Type: Spontaneous
  Country: CN (occurrence: CN)
  Receive Date: 20250327
  Receipt Date: 20250327
  Transmission Date: 20250408
  Serious: Yes (Other)
  Sender: SANDOZ
  Company Number: CN-002147023-NVSC2025CN050470

PATIENT
  Age: 61 Year
  Sex: Male
  Weight: 60 kg

DRUGS (2)
  1. MYCOPHENOLATE SODIUM [Suspect]
     Active Substance: MYCOPHENOLATE SODIUM
     Indication: Prophylaxis against transplant rejection
     Dosage: 360 MG, BID (ENTERIC-COATED TABLETS)
     Route: 048
     Dates: start: 20240125, end: 20240807
  2. TACROLIMUS [Suspect]
     Active Substance: TACROLIMUS
     Indication: Prophylaxis against transplant rejection
     Dosage: 1 MG, BID
     Route: 048
     Dates: start: 20240125, end: 20240918

REACTIONS (8)
  - Pustule [Unknown]
  - Blister [Unknown]
  - Rash pustular [Unknown]
  - Swelling [Recovering/Resolving]
  - Folliculitis [Unknown]
  - Herpes zoster [Recovered/Resolved]
  - Pain [Recovered/Resolved]
  - Pyrexia [Recovered/Resolved]

NARRATIVE: CASE EVENT DATE: 20240706
